FAERS Safety Report 6879471-7 (Version None)
Quarter: 2010Q3

REPORT INFORMATION
  Report Type: 
  Country: None (occurrence: None)
  Receive Date: 20100728
  Receipt Date: 20100720
  Transmission Date: 20110219
  Serious: Yes (Hospitalization)
  Sender: FDA-Public Use
  Company Number: GXKR2010GB08072

PATIENT
  Age: 62 Year
  Sex: Female

DRUGS (5)
  1. CYTARABINE (NGX) [Suspect]
     Indication: CENTRAL NERVOUS SYSTEM LYMPHOMA
     Route: 065
  2. METHOTREXATE [Suspect]
     Indication: CENTRAL NERVOUS SYSTEM LYMPHOMA
     Route: 065
  3. DOXYCYCLINE (NGX) [Suspect]
     Indication: SEPSIS
     Route: 065
  4. FUSIDIC ACID [Concomitant]
     Indication: SEPSIS
  5. VANCOMYCIN [Concomitant]
     Indication: SEPSIS

REACTIONS (8)
  - ANTEROGRADE AMNESIA [None]
  - CEREBELLAR SYNDROME [None]
  - CEREBROVASCULAR DISORDER [None]
  - CONFUSIONAL STATE [None]
  - RETROGRADE AMNESIA [None]
  - VOMITING [None]
  - WERNICKE'S ENCEPHALOPATHY [None]
  - WERNICKE-KORSAKOFF SYNDROME [None]
